FAERS Safety Report 6256050-6 (Version None)
Quarter: 2009Q2

REPORT INFORMATION
  Report Type: 
  Country: None (occurrence: None)
  Receive Date: 20090630
  Receipt Date: 20090630
  Transmission Date: 20091009
  Serious: Yes (Other)
  Sender: FDA-Public Use
  Company Number: None

PATIENT
  Age: 36 Year
  Sex: Female
  Weight: 58.9676 kg

DRUGS (1)
  1. ZICAM COLD REMEDY GEL SWAB 1 MEDICATED SWAB APPLICATOR ZICAM LLC/ MATR [Suspect]
     Indication: NASOPHARYNGITIS
     Dosage: 1 MEDICATED SWAB APPLICATOR NASAL
     Route: 045
     Dates: start: 20090505, end: 20090507

REACTIONS (2)
  - HYPOGEUSIA [None]
  - HYPOSMIA [None]
